FAERS Safety Report 13718346 (Version 1)
Quarter: 2017Q3

REPORT INFORMATION
  Report Type: Spontaneous
  Country: MX (occurrence: MX)
  Receive Date: 20170705
  Receipt Date: 20170705
  Transmission Date: 20171127
  Serious: Yes (Other)
  Sender: FDA-Public Use
  Company Number: MX-PFIZER INC-2017283493

PATIENT
  Age: 57 Year
  Sex: Female

DRUGS (1)
  1. CELEBREX [Suspect]
     Active Substance: CELECOXIB
     Indication: PAIN
     Dosage: 200 MG, 2X/DAY
     Dates: start: 1998

REACTIONS (3)
  - Upper limb fracture [Not Recovered/Not Resolved]
  - Infection parasitic [Unknown]
  - Fall [Not Recovered/Not Resolved]

NARRATIVE: CASE EVENT DATE: 1998
